FAERS Safety Report 7948019-8 (Version None)
Quarter: 2011Q4

REPORT INFORMATION
  Report Type: 
  Country: None (occurrence: None)
  Receive Date: 20111125
  Receipt Date: 20111117
  Transmission Date: 20120403
  Serious: Yes (Other)
  Sender: FDA-Public Use
  Company Number: 1000019852

PATIENT
  Age: 22 Year
  Sex: Male
  Weight: 93.44 kg

DRUGS (4)
  1. TEFLARO [Suspect]
     Indication: CELLULITIS
     Dosage: 1200 MG (600 MG,1 IN 12 HR),INTRAVENOUS (NOT OTHERWISE SPECIFIED)
     Route: 042
     Dates: start: 20110315, end: 20110317
  2. TYLENOL (ACEAMINOPHEN) (500 MILLIGRAM, TABLETS) (ACETAMINOPHEN) [Concomitant]
  3. NICOTINE PATCH (NICOTINE) (21 MILLIGRAM, POULTICE OR PATCH) (NICOTINE) [Concomitant]
  4. LORTAB (ACETAMINOPHEN AND HYDROCODONE) (7.5 MILLIGRAM, TABLETS) (ACETA [Concomitant]

REACTIONS (7)
  - CONDITION AGGRAVATED [None]
  - CULTURE WOUND POSITIVE [None]
  - STAPHYLOCOCCUS TEST POSITIVE [None]
  - BLOOD IRON DECREASED [None]
  - ANAEMIA [None]
  - CELLULITIS [None]
  - PURULENT DISCHARGE [None]
